FAERS Safety Report 6387102-8 (Version None)
Quarter: 2009Q4

REPORT INFORMATION
  Report Type: 
  Country: None (occurrence: None)
  Receive Date: 20091002
  Receipt Date: 20090925
  Transmission Date: 20100525
  Serious: Yes (Hospitalization)
  Sender: FDA-Public Use
  Company Number: US-ASTRAZENECA-2009SE11302

PATIENT
  Sex: Male

DRUGS (2)
  1. SYMBICORT [Suspect]
     Indication: LUNG DISORDER
     Dosage: 2 PUFFS
     Route: 055
  2. CRESTOR [Concomitant]
     Route: 048

REACTIONS (1)
  - PNEUMONIA [None]
